FAERS Safety Report 5492895-8 (Version None)
Quarter: 2007Q4

REPORT INFORMATION
  Report Type: 
  Country: None (occurrence: None)
  Receive Date: 20071018
  Receipt Date: 20071003
  Transmission Date: 20080405
  Serious: Yes (Hospitalization)
  Sender: FDA-Public Use
  Company Number: 162399ISR

PATIENT
  Age: 28 Year
  Sex: Male

DRUGS (13)
  1. DOXORUBICIN HCL [Suspect]
     Indication: B-CELL LYMPHOMA
  2. VINCRISTINE [Suspect]
     Indication: B-CELL LYMPHOMA
  3. ETOPOSIDE [Suspect]
     Indication: B-CELL LYMPHOMA
  4. CISPLATIN [Suspect]
     Indication: B-CELL LYMPHOMA
  5. METHOTREXATE [Suspect]
     Indication: B-CELL LYMPHOMA
  6. CYCLOPHOSPHAMIDE [Suspect]
     Indication: B-CELL LYMPHOMA
  7. METHYLPREDNISOLONE [Suspect]
     Indication: B-CELL LYMPHOMA
  8. PREDNISONE [Suspect]
     Indication: B-CELL LYMPHOMA
  9. RITUXIMAB [Suspect]
     Indication: B-CELL LYMPHOMA
     Dosage: (375 MG/M2)
  10. CARMUSTINE [Suspect]
     Indication: B-CELL LYMPHOMA
  11. MELPHALAN [Suspect]
     Indication: B-CELL LYMPHOMA
  12. FLUDARABINE PHOSPHATE [Suspect]
     Indication: B-CELL LYMPHOMA
  13. CYCLOSPORINE [Suspect]
     Indication: B-CELL LYMPHOMA

REACTIONS (19)
  - APLASIA [None]
  - ARTHRALGIA [None]
  - ARTHRITIS INFECTIVE [None]
  - B-CELL LYMPHOMA RECURRENT [None]
  - BONE PAIN [None]
  - BRONCHOPULMONARY ASPERGILLOSIS [None]
  - CYTOMEGALOVIRUS INFECTION [None]
  - ERYTHEMA [None]
  - GENERALISED ERYTHEMA [None]
  - GRAFT VERSUS HOST DISEASE [None]
  - HAEMODIALYSIS [None]
  - HYPOGAMMAGLOBULINAEMIA [None]
  - JOINT SWELLING [None]
  - LYMPHOPENIA [None]
  - PNEUMONITIS [None]
  - RENAL FAILURE ACUTE [None]
  - RESPIRATORY SYNCYTIAL VIRUS INFECTION [None]
  - STEM CELL TRANSPLANT [None]
  - UREAPLASMA INFECTION [None]
